FAERS Safety Report 6793682-0 (Version None)
Quarter: 2010Q2

REPORT INFORMATION
  Report Type: 
  Country: None (occurrence: None)
  Receive Date: 20100624
  Receipt Date: 20090122
  Transmission Date: 20101027
  Serious: No
  Sender: FDA-Public Use
  Company Number: US-PFIZER INC-2009152345

PATIENT
  Sex: Male
  Weight: 81.633 kg

DRUGS (1)
  1. XALATAN [Suspect]
     Dosage: UNK
     Dates: start: 20081221

REACTIONS (1)
  - INCORRECT DOSE ADMINISTERED [None]
